FAERS Safety Report 4936164-0 (Version None)
Quarter: 2006Q1

REPORT INFORMATION
  Report Type: 
  Country: None (occurrence: None)
  Receive Date: 20060307
  Receipt Date: 20051117
  Transmission Date: 20060701
  Serious: Yes (Hospitalization, Disabling)
  Sender: FDA-Public Use
  Company Number: US-GLAXOSMITHKLINE-A0582982A

PATIENT
  Age: 40 Year
  Sex: Female

DRUGS (13)
  1. REQUIP [Suspect]
     Indication: RESTLESS LEGS SYNDROME
     Dosage: .25MG PER DAY
     Route: 048
     Dates: start: 20051114, end: 20051114
  2. TOPAMAX [Concomitant]
  3. COPAXONE [Concomitant]
  4. WELLBUTRIN [Concomitant]
  5. LASIX [Concomitant]
  6. ALDACTONE [Concomitant]
  7. ATENOLOL [Concomitant]
  8. LANOXIN [Concomitant]
  9. COUMADIN [Concomitant]
  10. AMANTADINE HCL [Concomitant]
  11. ZOLOFT [Concomitant]
  12. RELPAX [Concomitant]
  13. AMBIEN [Concomitant]

REACTIONS (1)
  - HALLUCINATION, VISUAL [None]
